FAERS Safety Report 4970379-0 (Version None)
Quarter: 2006Q2

REPORT INFORMATION
  Report Type: 
  Country: None (occurrence: None)
  Receive Date: 20060412
  Receipt Date: 20060407
  Transmission Date: 20061013
  Serious: Yes (Other)
  Sender: FDA-Public Use
  Company Number: US-GLAXOSMITHKLINE-A0600945A

PATIENT
  Age: 39 Year
  Sex: Female

DRUGS (5)
  1. AVANDIA [Suspect]
     Indication: DIABETES MELLITUS NON-INSULIN-DEPENDENT
     Route: 048
     Dates: start: 20060201, end: 20060301
  2. METFORMIN [Suspect]
     Indication: DIABETES MELLITUS NON-INSULIN-DEPENDENT
     Dates: start: 20060201, end: 20060301
  3. BYETTA [Concomitant]
  4. MAVIK [Concomitant]
  5. ZETIA [Concomitant]

REACTIONS (1)
  - STEVENS-JOHNSON SYNDROME [None]
